FAERS Safety Report 14951599 (Version 2)
Quarter: 2018Q3

REPORT INFORMATION
  Report Type: Spontaneous
  Country: JP (occurrence: JP)
  Receive Date: 20180530
  Receipt Date: 20180829
  Transmission Date: 20181010
  Serious: Yes (Death, Life-Threatening, Hospitalization, Other)
  Sender: FDA-Public Use
  Company Number: JP-SAKK-BA201707623001

PATIENT
  Age: 79 Year
  Sex: Male
  Weight: 60.1 kg

DRUGS (15)
  1. DECADRON [DEXAMETHASONE] [Concomitant]
     Route: 048
     Dates: start: 20170803, end: 20170804
  2. LOPERAMIDE [LOPERAMIDE HYDROCHLORIDE] [Concomitant]
     Indication: DIARRHOEA
     Route: 048
     Dates: start: 20170802, end: 20170811
  3. DECADRON [DEXAMETHASONE] [Concomitant]
     Indication: VOMITING
     Route: 048
     Dates: start: 20170616, end: 20170617
  4. MIYA?BM [Concomitant]
     Active Substance: CLOSTRIDIUM BUTYRICUM SPORES STRAIN M-55
     Indication: DIARRHOEA
     Route: 048
     Dates: start: 20170804, end: 20170811
  5. ENSURE [NUTRIENTS NOS] [Concomitant]
     Indication: MALNUTRITION
     Route: 048
     Dates: start: 20170725, end: 20170811
  6. FLUOROURACIL. [Concomitant]
     Active Substance: FLUOROURACIL
     Indication: COLON CANCER
     Dosage: 4152 UG, QD
     Route: 042
     Dates: start: 20170615, end: 20170802
  7. CALCIUM LEVOFOLINATE [Concomitant]
     Active Substance: LEVOLEUCOVORIN CALCIUM
     Indication: COLON CANCER
     Dosage: 346 UG, QD
     Route: 042
     Dates: start: 20170615, end: 20180802
  8. NOVAMIN [PROCHLORPERAZINE MALEATE] [Concomitant]
     Indication: VOMITING
     Route: 048
     Dates: start: 20170618, end: 20170618
  9. ZALTRAP [Suspect]
     Active Substance: ZIV-AFLIBERCEPT
     Indication: COLON CANCER
     Dosage: 248 MG, QOW
     Route: 042
     Dates: start: 20170615, end: 20170802
  10. DECADRON [DEXAMETHASONE] [Concomitant]
     Route: 048
     Dates: start: 20170720, end: 20170721
  11. MAGNESIUM OXIDE. [Concomitant]
     Active Substance: MAGNESIUM OXIDE
     Indication: CONSTIPATION
     Route: 048
     Dates: start: 20170615, end: 20170813
  12. DECADRON [DEXAMETHASONE] [Concomitant]
     Route: 048
     Dates: start: 20170630, end: 20170701
  13. LOXOPROFEN [LOXOPROFEN SODIUM] [Concomitant]
     Indication: BACK PAIN
     Route: 048
     Dates: start: 20170618, end: 20170625
  14. IRINOTECAN HYDROCHLORIDE. [Suspect]
     Active Substance: IRINOTECAN HYDROCHLORIDE
     Indication: COLON CANCER
     Dosage: 259.5 UG, QD
     Route: 042
     Dates: start: 20170615, end: 20170802
  15. MAINTATE [Concomitant]
     Active Substance: BISOPROLOL FUMARATE
     Indication: ANGINA PECTORIS
     Route: 048
     Dates: start: 20170804, end: 20170813

REACTIONS (10)
  - Febrile neutropenia [Recovering/Resolving]
  - Pneumonia [Recovering/Resolving]
  - Cardiac failure acute [Fatal]
  - Tachycardia [Recovering/Resolving]
  - Anaemia [Unknown]
  - Stomatitis [Recovering/Resolving]
  - Dysgeusia [Recovering/Resolving]
  - Platelet count decreased [Recovering/Resolving]
  - Diarrhoea [Recovering/Resolving]
  - Decreased appetite [Unknown]

NARRATIVE: CASE EVENT DATE: 20170802
